FAERS Safety Report 19869835 (Version 1)
Quarter: 2021Q3

REPORT INFORMATION
  Report Type: Report from Study
  Country: None (occurrence: CA)
  Receive Date: 20210923
  Receipt Date: 20210923
  Transmission Date: 20211014
  Serious: Yes (Other)
  Sender: FDA-Public Use
  Company Number: CA-ABBVIE-21K-028-4062138-00

PATIENT
  Age: 60 Year
  Sex: Male

DRUGS (1)
  1. HUMIRA [Suspect]
     Active Substance: ADALIMUMAB
     Indication: PSORIATIC ARTHROPATHY
     Route: 058
     Dates: start: 20200617

REACTIONS (18)
  - Precancerous cells present [Unknown]
  - Dysuria [Unknown]
  - Erythema [Unknown]
  - Areflexia [Unknown]
  - Nerve compression [Unknown]
  - Feeling hot [Unknown]
  - Musculoskeletal disorder [Unknown]
  - Injection site pain [Not Recovered/Not Resolved]
  - Abdominal pain [Unknown]
  - Discomfort [Unknown]
  - Pain [Unknown]
  - Skin warm [Unknown]
  - Diarrhoea [Unknown]
  - Plantar fasciitis [Not Recovered/Not Resolved]
  - Tendon disorder [Not Recovered/Not Resolved]
  - Arthralgia [Not Recovered/Not Resolved]
  - Pain in extremity [Not Recovered/Not Resolved]
  - Diarrhoea [Recovered/Resolved]

NARRATIVE: CASE EVENT DATE: 2021
